FAERS Safety Report 24795705 (Version 1)
Quarter: 2025Q1

REPORT INFORMATION
  Report Type: Spontaneous
  Country: US (occurrence: US)
  Receive Date: 20250101
  Receipt Date: 20250101
  Transmission Date: 20250408
  Serious: Yes (Hospitalization, Other)
  Sender: GLAXOSMITHKLINE
  Company Number: US-GLAXOSMITHKLINE INC-US2024GSK164879

PATIENT

DRUGS (6)
  1. BELIMUMAB [Suspect]
     Active Substance: BELIMUMAB
     Indication: Systemic lupus erythematosus
  2. BELIMUMAB [Suspect]
     Active Substance: BELIMUMAB
     Indication: Antiphospholipid syndrome
  3. HYDROXYCHLOROQUINE [Suspect]
     Active Substance: HYDROXYCHLOROQUINE
     Indication: Systemic lupus erythematosus
  4. HYDROXYCHLOROQUINE [Suspect]
     Active Substance: HYDROXYCHLOROQUINE
     Indication: Antiphospholipid syndrome
  5. CEFDINIR [Concomitant]
     Active Substance: CEFDINIR
     Indication: Urinary tract infection
  6. CEFDINIR [Concomitant]
     Active Substance: CEFDINIR
     Indication: Systemic lupus erythematosus

REACTIONS (3)
  - Herpes simplex hepatitis [Recovering/Resolving]
  - Drug-induced liver injury [Recovering/Resolving]
  - Respiratory failure [Recovering/Resolving]
